FAERS Safety Report 9216675 (Version 1)
Quarter: 2013Q2

REPORT INFORMATION
  Report Type: Spontaneous
  Country: US (occurrence: US)
  Receive Date: 20130408
  Receipt Date: 20130408
  Transmission Date: 20140414
  Serious: No
  Sender: FDA-Public Use
  Company Number: US-PFIZER INC-2013107601

PATIENT
  Age: 23 Year
  Sex: Female
  Weight: 63.49 kg

DRUGS (5)
  1. LYRICA [Suspect]
     Indication: PAIN
     Dosage: 150 MG, 2X/DAY
     Dates: start: 2012
  2. MORPHINE SULFATE [Suspect]
     Indication: PAIN
     Dosage: UNK
  3. OXYCODONE HYDROCHLORIDE [Suspect]
     Indication: PAIN
     Dosage: 15 MG, AS NEEDED
  4. OXYCODONE HYDROCHLORIDE [Suspect]
     Dosage: 15 MG, EVERY TWO HOURS FOR THREE DAYS
  5. VALIUM [Suspect]
     Indication: PAIN
     Dosage: UNK
     Route: 042

REACTIONS (2)
  - Pain [Recovered/Resolved]
  - Overdose [Unknown]
